FAERS Safety Report 4548758-5 (Version None)
Quarter: 2005Q1

REPORT INFORMATION
  Report Type: 
  Country: None (occurrence: None)
  Receive Date: 20050110
  Receipt Date: 20041230
  Transmission Date: 20050727
  Serious: Yes (Death, Hospitalization)
  Sender: FDA-Public Use
  Company Number: FR-AMGEN-UK105674

PATIENT
  Age: 63 Year
  Sex: Female
  Weight: 58 kg

DRUGS (10)
  1. KINERET [Suspect]
     Indication: RHEUMATOID ARTHRITIS
     Route: 058
     Dates: start: 20040901
  2. CORTANCYL [Suspect]
     Route: 048
     Dates: start: 19910101
  3. ARAVA [Suspect]
     Route: 048
     Dates: start: 20021215
  4. REMICADE [Suspect]
     Route: 042
     Dates: start: 20040929
  5. LEVOTHYROX [Concomitant]
  6. ISOPTIN [Concomitant]
  7. FOSINOPRIL SODIUM [Concomitant]
     Route: 065
  8. PLASMA PROTEIN FRACTION (HUMAN) [Concomitant]
  9. CACIT [Concomitant]
     Route: 065
  10. AREDIA [Concomitant]

REACTIONS (6)
  - ACUTE RESPIRATORY FAILURE [None]
  - DYSPNOEA EXACERBATED [None]
  - LEUKOCYTOSIS [None]
  - SHOCK [None]
  - STAPHYLOCOCCAL BACTERAEMIA [None]
  - STAPHYLOCOCCAL SEPSIS [None]
